FAERS Safety Report 23999242 (Version 1)
Quarter: 2024Q2

REPORT INFORMATION
  Report Type: Spontaneous
  Country: US (occurrence: US)
  Receive Date: 20240621
  Receipt Date: 20240621
  Transmission Date: 20240716
  Serious: No
  Sender: FDA-Public Use
  Company Number: US-HIKMA PHARMACEUTICALS USA INC.-US-H14001-23-01673

PATIENT

DRUGS (2)
  1. FLUTICASONE PROPIONATE [Suspect]
     Active Substance: FLUTICASONE PROPIONATE
     Indication: Sinus congestion
     Dosage: 100 MILLIGRAM, BID
     Route: 045
     Dates: start: 20230511, end: 20230511
  2. BENICAR [Concomitant]
     Active Substance: OLMESARTAN MEDOXOMIL
     Indication: Product used for unknown indication
     Dosage: UNKNOWN
     Route: 065

REACTIONS (4)
  - Rhinalgia [Unknown]
  - Asthenia [Not Recovered/Not Resolved]
  - Tongue coated [Not Recovered/Not Resolved]
  - Inappropriate schedule of product administration [Unknown]

NARRATIVE: CASE EVENT DATE: 20230511
